FAERS Safety Report 7954871-2 (Version None)
Quarter: 2011Q4

REPORT INFORMATION
  Report Type: 
  Country: None (occurrence: None)
  Receive Date: 20111202
  Receipt Date: 20111124
  Transmission Date: 20120403
  Serious: Yes (Other)
  Sender: FDA-Public Use
  Company Number: JP-CEPHALON-2011006046

PATIENT
  Age: 60 Year
  Sex: Male

DRUGS (2)
  1. BENDAMUSTINE HCL [Suspect]
     Indication: B-CELL LYMPHOMA
     Route: 042
     Dates: start: 20110907
  2. RITUXIMAB [Concomitant]
     Dates: start: 20110906, end: 20110906

REACTIONS (2)
  - ATONIC SEIZURES [None]
  - PHLEBITIS [None]
